FAERS Safety Report 9447950 (Version 2)
Quarter: 2013Q4

REPORT INFORMATION
  Report Type: Spontaneous
  Country: BR (occurrence: BR)
  Receive Date: 20130808
  Receipt Date: 20131009
  Transmission Date: 20140711
  Serious: Yes (Other)
  Sender: FDA-Public Use
  Company Number: PHHY2013BR084999

PATIENT
  Age: 10 Year
  Sex: 0

DRUGS (1)
  1. RITALINA [Suspect]
     Dosage: 2 DF, A DAY

REACTIONS (1)
  - Epilepsy [Recovered/Resolved]
